FAERS Safety Report 13962117 (Version 2)
Quarter: 2017Q3

REPORT INFORMATION
  Report Type: Spontaneous
  Country: FR (occurrence: FR)
  Receive Date: 20170912
  Receipt Date: 20170917
  Transmission Date: 20171128
  Serious: Yes (Hospitalization)
  Sender: FDA-Public Use
  Company Number: FR-ABBVIE-17P-056-2099512-00

PATIENT
  Age: 81 Year
  Sex: Female

DRUGS (1)
  1. DEPAKINE [Suspect]
     Active Substance: VALPROATE SODIUM
     Indication: EPILEPSY
     Route: 048

REACTIONS (6)
  - Cerebral atrophy [Recovered/Resolved]
  - Cognitive disorder [Recovered/Resolved]
  - Hyperaesthesia [Recovered/Resolved]
  - Weight decreased [Recovered/Resolved]
  - Dementia [Recovered/Resolved]
  - Parkinsonism [Recovered/Resolved]
